FAERS Safety Report 8888938 (Version 2)
Quarter: 2012Q4

REPORT INFORMATION
  Report Type: 
  Country: AU (occurrence: AU)
  Receive Date: 20121106
  Receipt Date: 20121123
  Transmission Date: 20130627
  Serious: Yes (Other)
  Sender: FDA-Public Use
  Company Number: PHHY2012AU100634

PATIENT
  Sex: Male

DRUGS (2)
  1. GLIVEC [Suspect]
     Indication: CHRONIC MYELOID LEUKAEMIA
     Dosage: UNK
     Dates: start: 200409
  2. GLIVEC [Suspect]
     Dosage: 600 UNK, UNK
     Route: 048
     Dates: start: 200410

REACTIONS (1)
  - Gastric antral vascular ectasia [Not Recovered/Not Resolved]
